FAERS Safety Report 4837534-1 (Version None)
Quarter: 2005Q4

REPORT INFORMATION
  Report Type: 
  Country: None (occurrence: None)
  Receive Date: 20051128
  Receipt Date: 20051101
  Transmission Date: 20060501
  Serious: Yes (Hospitalization)
  Sender: FDA-Public Use
  Company Number: JP-NOVOPROD-248299

PATIENT
  Age: 31 Year
  Sex: Male
  Weight: 68 kg

DRUGS (3)
  1. NOVOLIN R [Suspect]
     Indication: INSULIN-REQUIRING TYPE II DIABETES MELLITUS
     Dosage: 16+ 14 + 0 IU
     Route: 058
     Dates: start: 20051025, end: 20051101
  2. ALL OTHER THERAPEUTIC PRODUCTS [Suspect]
     Indication: HEPATITIS B
  3. NOVOLIN 50R CHU FLEXPEN [Suspect]
     Indication: INSULIN-REQUIRING TYPE II DIABETES MELLITUS
     Dosage: 0+0+10 IU
     Route: 058
     Dates: start: 20051025, end: 20051101

REACTIONS (3)
  - ALANINE AMINOTRANSFERASE INCREASED [None]
  - ASPARTATE AMINOTRANSFERASE INCREASED [None]
  - HEPATIC FUNCTION ABNORMAL [None]
